FAERS Safety Report 10319708 (Version 2)
Quarter: 2014Q3

REPORT INFORMATION
  Report Type: Other
  Country: US (occurrence: US)
  Receive Date: 20140719
  Receipt Date: 20140719
  Transmission Date: 20150326
  Serious: Yes (Hospitalization, Other)
  Sender: FDA-Public Use
  Company Number: US-GSKPPD-2014GSK001821

PATIENT
  Age: 76 Year
  Sex: Female

DRUGS (6)
  1. ASPIRIN. [Concomitant]
     Active Substance: ASPIRIN
  2. LOPRESSOR [Concomitant]
     Active Substance: METOPROLOL TARTRATE
  3. AVANDIA [Suspect]
     Active Substance: ROSIGLITAZONE MALEATE
     Indication: DIABETES MELLITUS
     Dosage: DATES OF AVANDIA USE COULD NOT BE CONFIRMED IN RECORDS REVIEWED.
     Route: 048
  4. ZOCOR [Concomitant]
     Active Substance: SIMVASTATIN
  5. K-DUR [Concomitant]
     Active Substance: POTASSIUM CHLORIDE
  6. LASIX [Concomitant]
     Active Substance: FUROSEMIDE

REACTIONS (1)
  - Cardiac failure congestive [Recovered/Resolved]

NARRATIVE: CASE EVENT DATE: 20041128
